FAERS Safety Report 11053605 (Version 5)
Quarter: 2017Q1

REPORT INFORMATION
  Report Type: Spontaneous
  Country: US (occurrence: US)
  Receive Date: 20150421
  Receipt Date: 20170116
  Transmission Date: 20170428
  Serious: Yes (Other)
  Sender: FDA-Public Use
  Company Number: US-JNJFOC-20150408934

PATIENT
  Age: 13 Year
  Sex: Male
  Weight: 79.65 kg

DRUGS (2)
  1. RISPERDAL [Suspect]
     Active Substance: RISPERIDONE
     Indication: PRODUCT USED FOR UNKNOWN INDICATION
     Route: 048
     Dates: end: 20111024
  2. RISPERDAL [Suspect]
     Active Substance: RISPERIDONE
     Indication: PRODUCT USED FOR UNKNOWN INDICATION
     Dosage: 1 MG TABLET ORALLY IN AM AND 1/2 TABLET AT BEDTIME
     Route: 048
     Dates: end: 201306

REACTIONS (5)
  - Irritability [Unknown]
  - Bronchitis [Unknown]
  - Gynaecomastia [Not Recovered/Not Resolved]
  - Overweight [Not Recovered/Not Resolved]
  - Breast discharge [Unknown]

NARRATIVE: CASE EVENT DATE: 201110
